FAERS Safety Report 13237103 (Version 1)
Quarter: 2017Q1

REPORT INFORMATION
  Report Type: Spontaneous
  Country: CN (occurrence: CN)
  Receive Date: 20170215
  Receipt Date: 20170215
  Transmission Date: 20170428
  Serious: No
  Sender: FDA-Public Use
  Company Number: CN-B. BRAUN MEDICAL INC.-1063153

PATIENT
  Age: 50 Year
  Sex: Female
  Weight: 65 kg

DRUGS (4)
  1. PHENERGAN [Concomitant]
     Active Substance: PROMETHAZINE HYDROCHLORIDE
     Route: 030
     Dates: start: 20161011
  2. MOXIFLOXACIN. [Concomitant]
     Active Substance: MOXIFLOXACIN
     Route: 042
     Dates: start: 20161011
  3. LEFANMIN [Suspect]
     Active Substance: AMINO ACIDS
     Route: 042
     Dates: start: 20161011, end: 20161011
  4. NUTRILIPID I.V. FAT EMULSION [Suspect]
     Active Substance: SOYBEAN OIL
     Indication: DRUG THERAPY
     Route: 041
     Dates: start: 20161011, end: 20161011

REACTIONS (2)
  - Infusion related reaction [None]
  - Chills [Recovered/Resolved]
